FAERS Safety Report 7191968-1 (Version None)
Quarter: 2010Q4

REPORT INFORMATION
  Report Type: 
  Country: None (occurrence: None)
  Receive Date: 20101223
  Receipt Date: 20101215
  Transmission Date: 20110411
  Serious: Yes (Hospitalization)
  Sender: FDA-Public Use
  Company Number: PHHY2010RU66982

PATIENT
  Sex: Male

DRUGS (7)
  1. EXTAVIA [Suspect]
     Indication: RELAPSING-REMITTING MULTIPLE SCLEROSIS
     Dosage: UNK
     Dates: start: 20100928
  2. EXTAVIA [Suspect]
     Dosage: UNK
     Dates: start: 20100930
  3. PARACETAMOL [Concomitant]
     Dosage: UNK
  4. TRENTAL [Concomitant]
     Dosage: UNK
  5. EUPHYLLINE [Concomitant]
     Dosage: UNK
  6. PIRACETAM [Concomitant]
     Dosage: UNK
  7. MILGAMMA [Concomitant]
     Dosage: UNK

REACTIONS (6)
  - ASTHENIA [None]
  - DYSSTASIA [None]
  - PYREXIA [None]
  - TREMOR [None]
  - URINARY RETENTION [None]
  - VISION BLURRED [None]
